FAERS Safety Report 5263856-9 (Version None)
Quarter: 2007Q1

REPORT INFORMATION
  Report Type: 
  Country: None (occurrence: None)
  Receive Date: 20061213
  Receipt Date: 20040325
  Transmission Date: 20070707
  Serious: Yes (Other)
  Sender: FDA-Public Use
  Company Number: 2004UW05934

PATIENT
  Age: 59 Year
  Sex: Male
  Weight: 74.8435 kg

DRUGS (3)
  1. IRESSA [Suspect]
     Indication: METASTASES TO LIVER
     Dosage: 250 MG PO
     Route: 048
     Dates: start: 20040101
  2. IRESSA [Suspect]
     Indication: NON-SMALL CELL LUNG CANCER
     Dosage: 250 MG PO
     Route: 048
     Dates: start: 20040101
  3. HYDROCHLOROTHIAZIDE [Concomitant]

REACTIONS (1)
  - FLATULENCE [None]
